FAERS Safety Report 5730630-6 (Version None)
Quarter: 2008Q2

REPORT INFORMATION
  Report Type: 
  Country: None (occurrence: None)
  Receive Date: 20080507
  Receipt Date: 20080428
  Transmission Date: 20081010
  Serious: Yes (Hospitalization)
  Sender: FDA-Public Use
  Company Number: DE-GENENTECH-260473

PATIENT
  Sex: Female

DRUGS (3)
  1. BEVACIZUMAB [Suspect]
     Indication: OVARIAN CANCER
     Dosage: 7.5 MG/KG, Q3W
     Route: 042
     Dates: start: 20070920, end: 20080103
  2. PACLITAXEL [Suspect]
     Indication: OVARIAN CANCER
     Dosage: 175 MG/M2, UNK
     Dates: start: 20070920, end: 20080103
  3. CARBOPLATIN [Suspect]
     Indication: OVARIAN CANCER
     Dates: start: 20070920, end: 20080103

REACTIONS (1)
  - SYNCOPE VASOVAGAL [None]
